FAERS Safety Report 8260480-0 (Version None)
Quarter: 2012Q2

REPORT INFORMATION
  Report Type: 
  Country: None (occurrence: None)
  Receive Date: 20120404
  Receipt Date: 20120322
  Transmission Date: 20120825
  Serious: Yes (Death)
  Sender: FDA-Public Use
  Company Number: US-RB-029806-11

PATIENT
  Sex: Female
  Weight: 63 kg

DRUGS (5)
  1. BENZOYLECGONINE [Suspect]
     Indication: PRODUCT USED FOR UNKNOWN INDICATION
     Dosage: UNKNOWN DOSE
     Route: 065
  2. METHADONE HCL [Suspect]
     Indication: SUBSTANCE ABUSE
     Dosage: TAPERED FROM 140 MG TO 0 MG OVER A 3-4 WEEK PERIOD
     Route: 065
     Dates: start: 20110519
  3. ETHYL ALCOHOL [Suspect]
     Indication: PRODUCT USED FOR UNKNOWN INDICATION
     Dosage: UNKNOWN DOSE
     Route: 065
  4. SUBUTEX [Suspect]
     Indication: SUBSTANCE ABUSE
     Dosage: DOSE IS 4 MG EVERY 8 HOURS AS NECESSARY
     Route: 060
     Dates: start: 20110601
  5. BENZODIAZEPINES [Suspect]
     Indication: PRODUCT USED FOR UNKNOWN INDICATION
     Dosage: UNKNOWN DOSE
     Route: 065

REACTIONS (2)
  - GUN SHOT WOUND [None]
  - COMPLETED SUICIDE [None]
